FAERS Safety Report 6130065-0 (Version None)
Quarter: 2009Q1

REPORT INFORMATION
  Report Type: 
  Country: None (occurrence: None)
  Receive Date: 20090324
  Receipt Date: 20090316
  Transmission Date: 20090719
  Serious: Yes (Hospitalization, Other)
  Sender: FDA-Public Use
  Company Number: MX-ASTRAZENECA-2009UW07128

PATIENT
  Age: 14 Month
  Sex: Male

DRUGS (4)
  1. MEROPENEM [Suspect]
     Indication: SEPTIC SHOCK
     Route: 042
  2. DICLOXACILLIN [Concomitant]
     Indication: BACTERAEMIA
  3. AMIKACIN [Concomitant]
     Indication: BACTERAEMIA
  4. CEFTRAXIONE [Concomitant]
     Indication: BACTERAEMIA

REACTIONS (1)
  - SYSTEMIC INFLAMMATORY RESPONSE SYNDROME [None]
